FAERS Safety Report 7520092-0 (Version None)
Quarter: 2011Q2

REPORT INFORMATION
  Report Type: 
  Country: None (occurrence: None)
  Receive Date: 20110602
  Receipt Date: 20110531
  Transmission Date: 20111010
  Serious: Yes (Life-Threatening)
  Sender: FDA-Public Use
  Company Number: US-B.I. PHARMACEUTICALS,INC./RIDGEFIELD-2011-BP-07958BP

PATIENT
  Age: 92 Year
  Sex: Female
  Weight: 64.41 kg

DRUGS (12)
  1. PROAIR HFA [Concomitant]
  2. FLOVENT [Concomitant]
     Dosage: 220 MG
  3. VOLTAREN [Concomitant]
     Dosage: 75 MG
  4. NEXIUM [Concomitant]
     Dosage: 40 MG
  5. ASPIRIN [Concomitant]
     Dosage: 162 MG
  6. IMDUR [Concomitant]
     Dosage: 90 MG
  7. FERROUS SULFATE TAB [Concomitant]
     Dosage: 325 MG
  8. PRADAXA [Suspect]
     Indication: ATRIAL FIBRILLATION
     Dosage: 300 MG
     Route: 048
     Dates: start: 20110126, end: 20110313
  9. PRADAXA [Suspect]
     Indication: TRANSIENT ISCHAEMIC ATTACK
  10. PRAVASTATIN [Concomitant]
     Dosage: 80 MG
  11. METAMUCIL-2 [Concomitant]
  12. TOPROL-XL [Concomitant]
     Dosage: 50 MG

REACTIONS (3)
  - COLITIS [None]
  - GASTROINTESTINAL HAEMORRHAGE [None]
  - HAEMATOCHEZIA [None]
